FAERS Safety Report 9677657 (Version 3)
Quarter: 2013Q4

REPORT INFORMATION
  Report Type: Spontaneous
  Country: CO (occurrence: CO)
  Receive Date: 20131108
  Receipt Date: 20131127
  Transmission Date: 20140711
  Serious: Yes (Death, Other)
  Sender: FDA-Public Use
  Company Number: CO-ASTELLAS-2013US011505

PATIENT
  Sex: Male

DRUGS (4)
  1. PROGRAF XL [Suspect]
     Indication: RENAL TRANSPLANT
     Dosage: 7 MG, UID/QD
     Route: 048
     Dates: start: 20130626
  2. PREDNISOLONE [Concomitant]
     Indication: PRODUCT USED FOR UNKNOWN INDICATION
     Dosage: UNK
     Route: 065
  3. MYCOPHENOLATE [Concomitant]
     Indication: PRODUCT USED FOR UNKNOWN INDICATION
     Dosage: UNK
     Route: 065
  4. ENALAPRIL [Concomitant]
     Indication: PRODUCT USED FOR UNKNOWN INDICATION
     Dosage: UNK
     Route: 065

REACTIONS (2)
  - Myocardial infarction [Unknown]
  - Infection [Fatal]
